FAERS Safety Report 14958850 (Version 1)
Quarter: 2018Q2

REPORT INFORMATION
  Report Type: Spontaneous
  Country: US (occurrence: US)
  Receive Date: 20180531
  Receipt Date: 20180531
  Transmission Date: 20180711
  Serious: Yes (Hospitalization)
  Sender: FDA-Public Use
  Company Number: PHHY2018US009178

PATIENT
  Age: 52 Year
  Sex: Female

DRUGS (2)
  1. LINEZOLID. [Suspect]
     Active Substance: LINEZOLID
     Indication: DIVERTICULITIS
     Dosage: UNK
     Route: 065
  2. ERTAPENEM. [Concomitant]
     Active Substance: ERTAPENEM SODIUM
     Indication: DIVERTICULITIS
     Dosage: UNK
     Route: 065

REACTIONS (11)
  - Mental disorder [Unknown]
  - Hypotension [Unknown]
  - Asthenia [Unknown]
  - Pancreatitis acute [Unknown]
  - Toxicity to various agents [Unknown]
  - Septic shock [Unknown]
  - Hypoglycaemia [Unknown]
  - Tachycardia [Unknown]
  - Abdominal pain [Unknown]
  - Abdominal abscess [Unknown]
  - Lactic acidosis [Unknown]
